FAERS Safety Report 10103087 (Version 2)
Quarter: 2014Q2

REPORT INFORMATION
  Report Type: Spontaneous
  Country: US (occurrence: US)
  Receive Date: 20140424
  Receipt Date: 20140513
  Transmission Date: 20141212
  Serious: Yes (Hospitalization)
  Sender: FDA-Public Use
  Company Number: US-GLAXOSMITHKLINE-A1065509A

PATIENT
  Age: 47 Year
  Sex: Male

DRUGS (1)
  1. LAMICTAL XR [Suspect]
     Indication: NERVOUS SYSTEM DISORDER
     Dosage: 300MG PER DAY
     Route: 048
     Dates: start: 20130404

REACTIONS (7)
  - Convulsion [Unknown]
  - Insomnia [Unknown]
  - Drug intolerance [Recovered/Resolved]
  - Somnolence [Unknown]
  - Drug ineffective [Unknown]
  - Depression [Unknown]
  - Dysgeusia [Unknown]
